FAERS Safety Report 4389186-5 (Version None)
Quarter: 2004Q2

REPORT INFORMATION
  Report Type: 
  Country: None (occurrence: None)
  Receive Date: 20040628
  Receipt Date: 20040610
  Transmission Date: 20050107
  Serious: Yes (Death, Hospitalization)
  Sender: FDA-Public Use
  Company Number: 191026

PATIENT
  Age: 56 Year
  Sex: Female

DRUGS (1)
  1. AVONEX [Suspect]
     Indication: MULTIPLE SCLEROSIS
     Dosage: 30 MCG QW IM
     Route: 030
     Dates: start: 19971001, end: 20040603

REACTIONS (5)
  - CARDIAC FAILURE CONGESTIVE [None]
  - CHRONIC OBSTRUCTIVE AIRWAYS DISEASE [None]
  - CONDITION AGGRAVATED [None]
  - MULTIPLE SCLEROSIS [None]
  - PNEUMONIA [None]
